FAERS Safety Report 6397846-X (Version None)
Quarter: 2009Q4

REPORT INFORMATION
  Report Type: 
  Country: None (occurrence: None)
  Receive Date: 20091013
  Receipt Date: 20091002
  Transmission Date: 20100525
  Serious: Yes (Hospitalization)
  Sender: FDA-Public Use
  Company Number: FR-BIOGENIDEC-2009BI013057

PATIENT
  Age: 47 Year
  Sex: Female
  Weight: 75 kg

DRUGS (6)
  1. TYSABRI [Suspect]
     Indication: MULTIPLE SCLEROSIS
     Route: 042
     Dates: start: 20080121
  2. CARBAMAZEPINE [Concomitant]
     Indication: DEPRESSION
     Dates: start: 20060101
  3. ZYPREXA [Concomitant]
     Indication: DEPRESSION
     Dates: start: 20070101
  4. LYSANXIA 10 [Concomitant]
     Indication: DEPRESSION
     Dates: start: 20070101
  5. TERCIAN 25 [Concomitant]
     Indication: DEPRESSION
     Dates: start: 20070101
  6. LEVOTHYROXINE SODIUM [Concomitant]
     Indication: HYPOTHYROIDISM
     Dates: start: 20000101

REACTIONS (1)
  - BREAST CANCER [None]
